FAERS Safety Report 24937497 (Version 2)
Quarter: 2025Q1

REPORT INFORMATION
  Report Type: Spontaneous
  Country: US (occurrence: US)
  Receive Date: 20250206
  Receipt Date: 20250214
  Transmission Date: 20250408
  Serious: No
  Sender: BIOGEN
  Company Number: US-BIOGEN-2022BI01136067

PATIENT
  Sex: Male

DRUGS (1)
  1. VUMERITY [Suspect]
     Active Substance: DIROXIMEL FUMARATE
     Indication: Multiple sclerosis
     Dosage: TAKE 2 CAPSULES (462MG) BY MOUTH TWICE DAILY.
     Route: 050
     Dates: start: 20201211

REACTIONS (7)
  - Product dose omission in error [Unknown]
  - Memory impairment [Unknown]
  - Confusional state [Unknown]
  - Cognitive disorder [Unknown]
  - Visual impairment [Unknown]
  - Flushing [Unknown]
  - Pruritus [Unknown]
